FAERS Safety Report 15590464 (Version 1)
Quarter: 2018Q4

REPORT INFORMATION
  Report Type: Spontaneous
  Country: DE (occurrence: DE)
  Receive Date: 20181106
  Receipt Date: 20181106
  Transmission Date: 20190205
  Serious: Yes (Hospitalization)
  Sender: FDA-Public Use
  Company Number: DE-ACCORD-091174

PATIENT
  Age: 7 Year
  Sex: Male

DRUGS (2)
  1. DAPSONE. [Concomitant]
     Active Substance: DAPSONE
     Indication: ACUTE LYMPHOCYTIC LEUKAEMIA
  2. METHOTREXATE. [Suspect]
     Active Substance: METHOTREXATE
     Indication: ACUTE LYMPHOCYTIC LEUKAEMIA

REACTIONS (5)
  - Pneumonia cryptococcal [Unknown]
  - Respiratory failure [Unknown]
  - Encephalopathy [Unknown]
  - Pneumonitis [Unknown]
  - Granuloma [Unknown]
